FAERS Safety Report 15394999 (Version 1)
Quarter: 2018Q3

REPORT INFORMATION
  Report Type: Report from Study
  Country: None (occurrence: US)
  Receive Date: 20180918
  Receipt Date: 20180918
  Transmission Date: 20181010
  Serious: Yes (Hospitalization, Other)
  Sender: FDA-Public Use
  Company Number: US-ABBVIE-18K-163-2466599-00

PATIENT
  Age: 30 Year
  Sex: Female
  Weight: 61.29 kg

DRUGS (4)
  1. HUMIRA [Suspect]
     Active Substance: ADALIMUMAB
     Indication: CROHN^S DISEASE
     Route: 058
     Dates: start: 2017
  2. LEVOCARNITINE. [Concomitant]
     Active Substance: LEVOCARNITINE
     Indication: CARNITINE DEFICIENCY
  3. PREDNISONE. [Concomitant]
     Active Substance: PREDNISONE
     Indication: ADRENAL INSUFFICIENCY
  4. LEVOTHYROXINE. [Concomitant]
     Active Substance: LEVOTHYROXINE
     Indication: THYROID DISORDER

REACTIONS (9)
  - Urinary incontinence [Recovering/Resolving]
  - Neoplasm malignant [Not Recovered/Not Resolved]
  - Vaginal haemorrhage [Recovered/Resolved]
  - Heart rate irregular [Recovering/Resolving]
  - Muscular weakness [Recovering/Resolving]
  - Human chorionic gonadotropin abnormal [Not Recovered/Not Resolved]
  - Abdominal pain [Recovered/Resolved]
  - Stomatitis [Not Recovered/Not Resolved]
  - Urinary retention [Not Recovered/Not Resolved]

NARRATIVE: CASE EVENT DATE: 201805
